FAERS Safety Report 15951511 (Version 1)
Quarter: 2019Q1

REPORT INFORMATION
  Report Type: Spontaneous
  Country: US (occurrence: US)
  Receive Date: 20190211
  Receipt Date: 20190211
  Transmission Date: 20190417
  Serious: No
  Sender: FDA-Public Use
  Company Number: US-SAMSUNG BIOEPIS-SB-2018-15267

PATIENT
  Sex: Female

DRUGS (1)
  1. RENFLEXIS [Suspect]
     Active Substance: INFLIXIMAB-ABDA
     Indication: CROHN^S DISEASE
     Dosage: UNKNOWN
     Route: 065

REACTIONS (4)
  - Tremor [Unknown]
  - Abdominal pain [Unknown]
  - Anxiety [Unknown]
  - Palpitations [Unknown]
